FAERS Safety Report 4601714-0 (Version None)
Quarter: 2005Q1

REPORT INFORMATION
  Report Type: 
  Country: None (occurrence: None)
  Receive Date: 20050131
  Receipt Date: 20041217
  Transmission Date: 20050727
  Serious: No
  Sender: FDA-Public Use
  Company Number: 200419715US

PATIENT
  Age: 61 Year
  Sex: Female

DRUGS (1)
  1. KETEK [Suspect]
     Indication: SINUSITIS
     Dosage: QD
     Dates: start: 20041216

REACTIONS (2)
  - DIARRHOEA [None]
  - NAUSEA [None]
